FAERS Safety Report 21759125 (Version 1)
Quarter: 2022Q4

REPORT INFORMATION
  Report Type: Spontaneous
  Country: US (occurrence: US)
  Receive Date: 20221221
  Receipt Date: 20221221
  Transmission Date: 20230113
  Serious: No
  Sender: FDA-Public Use
  Company Number: US-ASCENDIS PHARMA-2022US000872

PATIENT

DRUGS (6)
  1. SKYTROFA [Suspect]
     Active Substance: LONAPEGSOMATROPIN-TCGD
     Indication: Hypopituitarism
     Dosage: 9.1 MILLIGRAM, WEEKLY
     Route: 058
  2. SKYTROFA [Suspect]
     Active Substance: LONAPEGSOMATROPIN-TCGD
     Indication: Short stature
  3. SKYTROFA [Suspect]
     Active Substance: LONAPEGSOMATROPIN-TCGD
     Indication: Failure to thrive
  4. GUANFACINE HYDROCHLORIDE [Concomitant]
     Active Substance: GUANFACINE HYDROCHLORIDE
     Indication: Product used for unknown indication
  5. COTEMPLA XR-ODT [Concomitant]
     Active Substance: METHYLPHENIDATE
     Indication: Product used for unknown indication
  6. SERTRALINE HYDROCHLORIDE [Concomitant]
     Active Substance: SERTRALINE HYDROCHLORIDE
     Indication: Product used for unknown indication

REACTIONS (3)
  - Anxiety [Unknown]
  - Muscular weakness [Unknown]
  - Intrusive thoughts [Unknown]
